FAERS Safety Report 22836280 (Version 4)
Quarter: 2023Q4

REPORT INFORMATION
  Report Type: Spontaneous
  Country: US (occurrence: US)
  Receive Date: 20230818
  Receipt Date: 20231121
  Transmission Date: 20240110
  Serious: No
  Sender: FDA-Public Use
  Company Number: US-ASTELLAS-2023US019362

PATIENT
  Age: 74 Year
  Sex: Female

DRUGS (4)
  1. VEOZAH [Suspect]
     Active Substance: FEZOLINETANT
     Indication: Hot flush
     Dosage: UNK UNK, UNKNOWN FREQ.
     Route: 065
     Dates: start: 202306, end: 202306
  2. VEOZAH [Suspect]
     Active Substance: FEZOLINETANT
     Indication: Night sweats
  3. ESTROGEN NOS [Concomitant]
     Active Substance: ESTROGENS
     Indication: Hot flush
     Dosage: UNK UNK, UNKNOWN FREQ.
     Route: 065
  4. ESTROGEN NOS [Concomitant]
     Active Substance: ESTROGENS
     Indication: Night sweats

REACTIONS (3)
  - Nausea [Unknown]
  - Off label use [Unknown]
  - Drug ineffective [Unknown]

NARRATIVE: CASE EVENT DATE: 20230601
